FAERS Safety Report 6851536-5 (Version None)
Quarter: 2010Q3

REPORT INFORMATION
  Report Type: 
  Country: None (occurrence: None)
  Receive Date: 20100717
  Receipt Date: 20080118
  Transmission Date: 20110219
  Serious: Yes (Other)
  Sender: FDA-Public Use
  Company Number: US-PFIZER INC-2008007945

PATIENT
  Sex: Female
  Weight: 63.636 kg

DRUGS (9)
  1. CHANTIX [Suspect]
     Indication: SMOKING CESSATION THERAPY
     Dates: start: 20080113, end: 20080118
  2. ABILIFY [Concomitant]
  3. BENICAR [Concomitant]
  4. METFORMIN HCL [Concomitant]
     Indication: TYPE 2 DIABETES MELLITUS
  5. GLYBURIDE [Concomitant]
     Indication: TYPE 2 DIABETES MELLITUS
  6. FUROSEMIDE [Concomitant]
  7. CYCLOBENZAPRINE [Concomitant]
  8. LUNESTA [Concomitant]
     Dosage: AT BEDTIME
  9. COMBIVENT [Concomitant]
     Indication: ASTHMA

REACTIONS (6)
  - ABNORMAL BEHAVIOUR [None]
  - CRYING [None]
  - EATING DISORDER [None]
  - FEAR [None]
  - HALLUCINATION [None]
  - INSOMNIA [None]
